FAERS Safety Report 7326123-5 (Version None)
Quarter: 2011Q1

REPORT INFORMATION
  Report Type: 
  Country: None (occurrence: None)
  Receive Date: 20110302
  Receipt Date: 20110218
  Transmission Date: 20110831
  Serious: Yes (Other)
  Sender: FDA-Public Use
  Company Number: US-RB-021431-11

PATIENT
  Age: 66 Year
  Sex: Male

DRUGS (1)
  1. MUCINEX [Suspect]
     Indication: UPPER RESPIRATORY TRACT CONGESTION
     Dosage: DOSING STARTED 4-5 MONTHS AGO, PATIENT TAKES ONE TABLET PER DAY 2-3 TIMES A WEEK
     Route: 048

REACTIONS (3)
  - VISION BLURRED [None]
  - INCORRECT DRUG ADMINISTRATION DURATION [None]
  - EYE HAEMORRHAGE [None]
